FAERS Safety Report 7608756-1 (Version None)
Quarter: 2011Q3

REPORT INFORMATION
  Report Type: 
  Country: None (occurrence: None)
  Receive Date: 20110714
  Receipt Date: 20110714
  Transmission Date: 20111222
  Serious: Yes (Other)
  Sender: FDA-Public Use
  Company Number: None

PATIENT
  Age: 58 Year
  Sex: Female
  Weight: 52.163 kg

DRUGS (1)
  1. IBANDRONATE SODIUM [Suspect]
     Indication: COMPLEX REGIONAL PAIN SYNDROME
     Dosage: 150 MG
     Route: 048
     Dates: start: 20110601, end: 20110701

REACTIONS (4)
  - OESOPHAGITIS [None]
  - MYALGIA [None]
  - DYSPHAGIA [None]
  - BACK PAIN [None]
